FAERS Safety Report 19744558 (Version 1)
Quarter: 2021Q3

REPORT INFORMATION
  Report Type: Spontaneous
  Country: US (occurrence: US)
  Receive Date: 20210823
  Receipt Date: 20210823
  Transmission Date: 20211014
  Serious: No
  Sender: FDA-Public Use
  Company Number: None

PATIENT
  Age: 35 Year
  Sex: Female

DRUGS (3)
  1. MENOPUR [Concomitant]
     Active Substance: FOLLITROPIN\LUTEINIZING HORMONE
     Dates: start: 20210416
  2. FOLLISTIM [Suspect]
     Active Substance: FOLLITROPIN
     Indication: INFERTILITY FEMALE
     Route: 058
     Dates: start: 20210416
  3. GANIRELIX [Suspect]
     Active Substance: GANIRELIX
     Indication: INFERTILITY FEMALE
     Route: 058
     Dates: start: 2021

REACTIONS (1)
  - Injection site pain [None]

NARRATIVE: CASE EVENT DATE: 20210820
